FAERS Safety Report 8311107-0 (Version None)
Quarter: 2012Q2

REPORT INFORMATION
  Report Type: 
  Country: None (occurrence: None)
  Receive Date: 20120423
  Receipt Date: 20120409
  Transmission Date: 20120825
  Serious: Yes (Death, Life-Threatening, Other)
  Sender: FDA-Public Use
  Company Number: AUR-APL-2012-01778

PATIENT
  Age: 37 Year
  Sex: Male

DRUGS (3)
  1. METHOTREXATE [Suspect]
     Dosage: INTRAVENOUS
     Route: 042
  2. TRIMETHOPRIM + SULFAMETHOXAZOLE [Suspect]
  3. AZITHROMYCIN [Concomitant]

REACTIONS (27)
  - DISCOMFORT [None]
  - TENDERNESS [None]
  - ODYNOPHAGIA [None]
  - HEPATITIS ACUTE [None]
  - DIARRHOEA [None]
  - HYPOTENSION [None]
  - PSORIASIS [None]
  - ERYTHEMA [None]
  - MUCOSAL INFLAMMATION [None]
  - TOXICITY TO VARIOUS AGENTS [None]
  - BACK PAIN [None]
  - ORAL MUCOSA EROSION [None]
  - NECROSIS [None]
  - DYSPHAGIA [None]
  - LIP DISORDER [None]
  - RENAL FAILURE ACUTE [None]
  - SELF-MEDICATION [None]
  - SWELLING FACE [None]
  - SCAB [None]
  - PUSTULAR PSORIASIS [None]
  - DYSPNOEA [None]
  - INCORRECT DOSE ADMINISTERED [None]
  - FEBRILE NEUTROPENIA [None]
  - CONDITION AGGRAVATED [None]
  - POTENTIATING DRUG INTERACTION [None]
  - RASH PUSTULAR [None]
  - PANCYTOPENIA [None]
